APPROVED DRUG PRODUCT: CLONAZEPAM
Active Ingredient: CLONAZEPAM
Strength: 2MG
Dosage Form/Route: TABLET;ORAL
Application: A074920 | Product #003
Applicant: TEVA PHARMACEUTICALS USA INC
Approved: Aug 4, 1998 | RLD: No | RS: No | Type: DISCN